FAERS Safety Report 17042117 (Version 1)
Quarter: 2019Q4

REPORT INFORMATION
  Report Type: Report from Study
  Country: CA (occurrence: CA)
  Receive Date: 20191118
  Receipt Date: 20191118
  Transmission Date: 20200122
  Serious: Yes (Other)
  Sender: FDA-Public Use
  Company Number: CA-ROCHE-1439842

PATIENT
  Sex: Male

DRUGS (34)
  1. BLOOD [Concomitant]
     Active Substance: WHOLE BLOOD
     Dosage: 1 UNITS OF PRBC
     Route: 065
     Dates: start: 20100522
  2. CYCLOSPORIN [Concomitant]
     Active Substance: CYCLOSPORINE
  3. OSTEO JOINT EASE [Concomitant]
  4. RITUXAN [Suspect]
     Active Substance: RITUXIMAB
     Indication: HAEMOLYTIC ANAEMIA
     Route: 042
     Dates: start: 20100712
  5. RITUXAN [Suspect]
     Active Substance: RITUXIMAB
     Dosage: LAST DOSE PRIOR TO SAE
     Route: 042
     Dates: start: 20110524
  6. BLOOD [Concomitant]
     Active Substance: WHOLE BLOOD
     Dosage: 2 UNITS OF PRBC
     Route: 065
     Dates: start: 20100516
  7. RISEDRONATE [Concomitant]
     Active Substance: RISEDRONATE SODIUM
  8. BLOOD [Concomitant]
     Active Substance: WHOLE BLOOD
     Dosage: 2 UNITS OF PRBC
     Route: 065
     Dates: start: 20100218
  9. BLOOD [Concomitant]
     Active Substance: WHOLE BLOOD
     Dosage: 2 UNITS OF PRBC
     Route: 065
     Dates: start: 20100315
  10. FOLIC ACID. [Concomitant]
     Active Substance: FOLIC ACID
  11. PREDNISONE. [Concomitant]
     Active Substance: PREDNISONE
  12. BLOOD [Concomitant]
     Active Substance: WHOLE BLOOD
     Dosage: 1 UNITS OF PRBC
     Route: 065
     Dates: start: 20100322
  13. BLOOD [Concomitant]
     Active Substance: WHOLE BLOOD
     Dosage: 2 UNITS OF PRBC
     Route: 065
     Dates: start: 20120820
  14. MAGNESIUM [Concomitant]
     Active Substance: MAGNESIUM
  15. RITUXAN [Suspect]
     Active Substance: RITUXIMAB
     Indication: IMMUNE THROMBOCYTOPENIC PURPURA
     Route: 042
     Dates: start: 20100628, end: 20190605
  16. RITUXAN [Suspect]
     Active Substance: RITUXIMAB
     Indication: EVANS SYNDROME
     Route: 042
     Dates: start: 20100705
  17. RITUXAN [Suspect]
     Active Substance: RITUXIMAB
     Route: 042
     Dates: start: 20100719
  18. RITUXAN [Suspect]
     Active Substance: RITUXIMAB
     Route: 042
     Dates: start: 20110516
  19. BLOOD [Concomitant]
     Active Substance: WHOLE BLOOD
     Indication: HAEMOGLOBIN DECREASED
     Dosage: 2 UNITS OF PRBC
     Route: 065
     Dates: start: 20100106
  20. BLOOD [Concomitant]
     Active Substance: WHOLE BLOOD
     Dosage: 2 UNITS OF PRBC
     Route: 065
     Dates: start: 20100517
  21. BLOOD [Concomitant]
     Active Substance: WHOLE BLOOD
     Dosage: 2 UNITS OF PRBC
     Route: 065
     Dates: start: 20120913
  22. BLOOD [Concomitant]
     Active Substance: WHOLE BLOOD
     Dosage: 2 UNITS OF PRBC
     Route: 065
     Dates: start: 20121129
  23. BLOOD [Concomitant]
     Active Substance: WHOLE BLOOD
     Dosage: 1 UNITS OF PRBC
     Route: 065
     Dates: start: 20130305
  24. CHONDROITIN SULFATE;GLUCOSAMINE SULFATE [Concomitant]
  25. L-ARGININE [ARGININE] [Concomitant]
  26. RITUXAN [Suspect]
     Active Substance: RITUXIMAB
     Route: 042
     Dates: start: 20110502
  27. RITUXAN [Suspect]
     Active Substance: RITUXIMAB
     Route: 042
     Dates: start: 20110509
  28. CELLCEPT [Suspect]
     Active Substance: MYCOPHENOLATE MOFETIL\MYCOPHENOLATE MOFETIL HYDROCHLORIDE
     Indication: PRODUCT USED FOR UNKNOWN INDICATION
     Route: 065
  29. BLOOD [Concomitant]
     Active Substance: WHOLE BLOOD
     Dosage: 2 UNITS OF PRBC
     Route: 065
     Dates: start: 20100614
  30. BLOOD [Concomitant]
     Active Substance: WHOLE BLOOD
     Dosage: 2 UNITS OF PRBC
     Route: 065
     Dates: start: 20121212
  31. RITUXAN [Suspect]
     Active Substance: RITUXIMAB
     Route: 042
     Dates: start: 20110426
  32. BLOOD [Concomitant]
     Active Substance: WHOLE BLOOD
     Dosage: 2 UNITS OF PRBC
     Route: 065
     Dates: start: 20100119
  33. BLOOD [Concomitant]
     Active Substance: WHOLE BLOOD
     Dosage: 2 UNITS OF PRBC
     Route: 065
     Dates: start: 20100419
  34. BLOOD [Concomitant]
     Active Substance: WHOLE BLOOD
     Dosage: 2 UNITS OF PRBC
     Route: 065
     Dates: start: 20100527

REACTIONS (5)
  - Intentional product use issue [Unknown]
  - Arthritis [Not Recovered/Not Resolved]
  - Fungal infection [Unknown]
  - Off label use [Unknown]
  - Haemoglobin decreased [Unknown]

NARRATIVE: CASE EVENT DATE: 2013
